FAERS Safety Report 5425992-3 (Version None)
Quarter: 2007Q3

REPORT INFORMATION
  Report Type: 
  Country: None (occurrence: None)
  Receive Date: 20070827
  Receipt Date: 20070817
  Transmission Date: 20080115
  Serious: Yes (Hospitalization)
  Sender: FDA-Public Use
  Company Number: DE-AMGEN-UK239571

PATIENT
  Sex: Male

DRUGS (4)
  1. NEULASTA [Suspect]
     Indication: CHEMOTHERAPY
     Route: 065
     Dates: start: 20070730
  2. NEUPOGEN [Suspect]
     Indication: CHEMOTHERAPY
     Route: 065
     Dates: end: 20070715
  3. INTERFERON [Concomitant]
     Route: 065
     Dates: start: 20070401
  4. CLADRIBINE [Concomitant]
     Route: 065
     Dates: start: 20070724

REACTIONS (3)
  - BODY TEMPERATURE FLUCTUATION [None]
  - HERPES ZOSTER [None]
  - NO THERAPEUTIC RESPONSE [None]
